FAERS Safety Report 7951330-8 (Version None)
Quarter: 2011Q4

REPORT INFORMATION
  Report Type: 
  Country: None (occurrence: None)
  Receive Date: 20111201
  Receipt Date: 20111128
  Transmission Date: 20120403
  Serious: Yes (Hospitalization)
  Sender: FDA-Public Use
  Company Number: US-ASTELLAS-2011US005888

PATIENT
  Sex: Female

DRUGS (1)
  1. ERLOTINIB HYDROCHLORIDE [Suspect]
     Indication: LUNG CARCINOMA CELL TYPE UNSPECIFIED STAGE 0
     Dosage: 100 MG, UID/QD
     Route: 048
     Dates: start: 20110909, end: 20111028

REACTIONS (6)
  - DIARRHOEA [None]
  - INSOMNIA [None]
  - INCORRECT DOSE ADMINISTERED [None]
  - RASH [None]
  - DECREASED APPETITE [None]
  - HOSPITALISATION [None]
